FAERS Safety Report 9466863 (Version 5)
Quarter: 2013Q4

REPORT INFORMATION
  Report Type: Report from Study
  Country: DE (occurrence: DE)
  Receive Date: 20130820
  Receipt Date: 20131112
  Transmission Date: 20140711
  Serious: Yes (Hospitalization)
  Sender: FDA-Public Use
  Company Number: PHHO2011DE11619

PATIENT
  Sex: 0

DRUGS (4)
  1. SOM230 [Suspect]
     Indication: NEUROENDOCRINE TUMOUR
     Dosage: 80 MG, UNK
     Route: 030
     Dates: start: 20110615, end: 20110615
  2. SOM230 [Suspect]
     Dosage: 40 MG, UNK
     Route: 030
     Dates: start: 20110713, end: 20110713
  3. SOM230 [Suspect]
     Dosage: UNK
     Route: 030
     Dates: start: 20120307, end: 20120307
  4. METFORMIN [Concomitant]
     Indication: DIABETES MELLITUS
     Dosage: 2 G, QD
     Route: 048
     Dates: start: 201106

REACTIONS (1)
  - Diabetes mellitus [Not Recovered/Not Resolved]
